FAERS Safety Report 5587788-1 (Version None)
Quarter: 2007Q4

REPORT INFORMATION
  Report Type: 
  Country: None (occurrence: None)
  Receive Date: 20071205
  Receipt Date: 20070703
  Transmission Date: 20080405
  Serious: Yes (Life-Threatening, Hospitalization)
  Sender: FDA-Public Use
  Company Number: E3810-01049-SPO-US

PATIENT
  Age: 44 Year
  Sex: Female
  Weight: 108 kg

DRUGS (4)
  1. ACIPHEX [Suspect]
     Indication: ABDOMINAL PAIN
     Dosage: 20 MG, ORAL
     Route: 048
     Dates: start: 20070701, end: 20070701
  2. ACIPHEX [Suspect]
     Indication: GASTROOESOPHAGEAL REFLUX DISEASE
     Dosage: 20 MG, ORAL
     Route: 048
     Dates: start: 20070701, end: 20070701
  3. ACIPHEX [Suspect]
     Indication: HIATUS HERNIA
     Dosage: 20 MG, ORAL
     Route: 048
     Dates: start: 20070701, end: 20070701
  4. REGLAN [Concomitant]

REACTIONS (1)
  - ANAPHYLACTIC REACTION [None]
